FAERS Safety Report 4305207-X (Version None)
Quarter: 2004Q1

REPORT INFORMATION
  Report Type: 
  Country: None (occurrence: None)
  Receive Date: 20040226
  Receipt Date: 20030926
  Transmission Date: 20041129
  Serious: Yes (Disabling, Other)
  Sender: FDA-Public Use
  Company Number: WAES 0309USA03307

PATIENT
  Sex: Female
  Weight: 55 kg

DRUGS (8)
  1. FOSAMAX [Suspect]
     Indication: OSTEOPOROSIS
     Route: 048
     Dates: start: 19991012
  2. FOSAMAX [Suspect]
     Route: 048
     Dates: end: 20040124
  3. ASPIRIN [Concomitant]
  4. CALCIUM (UNSPECIFIED) [Concomitant]
  5. NEXIUM [Concomitant]
  6. SYNTHROID [Concomitant]
  7. ZOCOR [Concomitant]
     Route: 048
  8. VERAPAMIL [Concomitant]

REACTIONS (6)
  - BURNING SENSATION [None]
  - EYE INFLAMMATION [None]
  - EYE REDNESS [None]
  - FLUSHING [None]
  - RASH MACULAR [None]
  - URTICARIA [None]
